FAERS Safety Report 4845844-7 (Version None)
Quarter: 2005Q4

REPORT INFORMATION
  Report Type: 
  Country: None (occurrence: None)
  Receive Date: 20051206
  Receipt Date: 20051121
  Transmission Date: 20060501
  Serious: Yes (Hospitalization)
  Sender: FDA-Public Use
  Company Number: FR-GLAXOSMITHKLINE-B0401165A

PATIENT
  Age: 73 Year
  Sex: Female
  Weight: 70 kg

DRUGS (4)
  1. CLAMOXYL [Suspect]
     Dosage: 1G THREE TIMES PER DAY
     Route: 048
     Dates: start: 20040317, end: 20040319
  2. LUTERAN [Concomitant]
  3. LOGIMAX [Concomitant]
     Dosage: 1TAB PER DAY
     Route: 048
  4. DOLIPRANE [Concomitant]
     Dosage: 500MG AS REQUIRED
     Route: 048

REACTIONS (1)
  - THROMBOCYTOPENIC PURPURA [None]
